FAERS Safety Report 9220765 (Version 1)
Quarter: 2013Q2

REPORT INFORMATION
  Report Type: Report from Study
  Country: CA (occurrence: CA)
  Receive Date: 20130409
  Receipt Date: 20130409
  Transmission Date: 20140414
  Serious: Yes (Other)
  Sender: FDA-Public Use
  Company Number: CA-NAPPMUNDI-CAN-2013-0003976

PATIENT
  Sex: Female
  Weight: 90.7 kg

DRUGS (1)
  1. OXYNEO [Suspect]
     Indication: OSTEOARTHRITIS
     Dosage: 20 MG, BID
     Route: 065

REACTIONS (5)
  - Blood glucose decreased [Unknown]
  - Chest pain [Unknown]
  - Malaise [Unknown]
  - Nausea [Unknown]
  - Dizziness [Unknown]
